FAERS Safety Report 15869265 (Version 1)
Quarter: 2019Q1

REPORT INFORMATION
  Report Type: Spontaneous
  Country: BR (occurrence: BR)
  Receive Date: 20190125
  Receipt Date: 20190125
  Transmission Date: 20190417
  Serious: Yes (Hospitalization, Other)
  Sender: FDA-Public Use
  Company Number: BR-ELI_LILLY_AND_COMPANY-BR201901010504

PATIENT
  Age: 74 Year
  Sex: Male
  Weight: 74 kg

DRUGS (6)
  1. EFFIENT [Suspect]
     Active Substance: PRASUGREL HYDROCHLORIDE
     Indication: CEREBROVASCULAR ACCIDENT
     Dosage: 10 MG, BID
     Route: 048
     Dates: start: 201807, end: 20181008
  2. HYDANTAL [Suspect]
     Active Substance: MEPHENYTOIN\PHENOBARBITAL
     Indication: PRODUCT USED FOR UNKNOWN INDICATION
     Dosage: UNK, UNKNOWN
     Route: 065
     Dates: start: 2018
  3. FUROSEMIDE. [Concomitant]
     Active Substance: FUROSEMIDE
     Indication: PRODUCT USED FOR UNKNOWN INDICATION
     Dosage: UNK, UNKNOWN
  4. EFFIENT [Suspect]
     Active Substance: PRASUGREL HYDROCHLORIDE
     Indication: CARDIAC DISORDER
  5. SIMVASTATIN. [Concomitant]
     Active Substance: SIMVASTATIN
     Indication: PRODUCT USED FOR UNKNOWN INDICATION
     Dosage: UNK, UNKNOWN
  6. ATENOLOL. [Concomitant]
     Active Substance: ATENOLOL
     Indication: PRODUCT USED FOR UNKNOWN INDICATION
     Dosage: UNK, UNKNOWN

REACTIONS (12)
  - Cerebrovascular accident [Recovering/Resolving]
  - Renal failure [Recovered/Resolved]
  - Prescribed overdose [Recovered/Resolved]
  - Epistaxis [Recovered/Resolved]
  - Off label use [Recovered/Resolved]
  - Body mass index decreased [Unknown]
  - Haemorrhage [Recovering/Resolving]
  - Ear haemorrhage [Recovered/Resolved]
  - Contraindicated product administered [Recovered/Resolved]
  - Coma [Recovered/Resolved]
  - Confusional state [Not Recovered/Not Resolved]
  - Eye haemorrhage [Recovered/Resolved]

NARRATIVE: CASE EVENT DATE: 201810
